FAERS Safety Report 4864485-9 (Version None)
Quarter: 2005Q4

REPORT INFORMATION
  Report Type: 
  Country: None (occurrence: None)
  Receive Date: 20051222
  Receipt Date: 20051214
  Transmission Date: 20060501
  Serious: Yes (Hospitalization)
  Sender: FDA-Public Use
  Company Number: BE-JNJFOC-20051203522

PATIENT
  Age: 38 Year
  Sex: Male
  Weight: 85 kg

DRUGS (1)
  1. RISPERDAL [Suspect]
     Indication: SCHIZOPHRENIA
     Dosage: START DATE REPORTED AS LONGER THAN 1 YEAR
     Route: 048

REACTIONS (1)
  - DYSLIPIDAEMIA [None]
